FAERS Safety Report 7151136-6 (Version None)
Quarter: 2010Q4

REPORT INFORMATION
  Report Type: 
  Country: None (occurrence: None)
  Receive Date: 20101210
  Receipt Date: 20101130
  Transmission Date: 20110411
  Serious: Yes (Hospitalization)
  Sender: FDA-Public Use
  Company Number: US-ACTELION-A-NJ2010-41698

PATIENT

DRUGS (2)
  1. TRACLEER [Suspect]
     Indication: PULMONARY ARTERIAL HYPERTENSION
     Dosage: UNK
     Route: 048
     Dates: start: 20100601
  2. REVATIO [Concomitant]

REACTIONS (4)
  - GASTROINTESTINAL TUBE INSERTION [None]
  - NUTRITIONAL SUPPORT [None]
  - PULMONARY ARTERIAL HYPERTENSION [None]
  - VOMITING [None]
